FAERS Safety Report 6254193-4 (Version None)
Quarter: 2009Q3

REPORT INFORMATION
  Report Type: 
  Country: None (occurrence: None)
  Receive Date: 20090701
  Receipt Date: 20090701
  Transmission Date: 20100115
  Serious: Yes (Hospitalization)
  Sender: FDA-Public Use
  Company Number: None

PATIENT
  Sex: Male
  Weight: 69.5 kg

DRUGS (6)
  1. DASATINIB [Suspect]
     Indication: METASTATIC NEOPLASM
     Dosage: 100 MG DAILY PO
     Route: 048
     Dates: start: 20071120, end: 20090628
  2. DASATINIB [Suspect]
     Indication: PLEURAL NEOPLASM
     Dosage: 100 MG DAILY PO
     Route: 048
     Dates: start: 20071120, end: 20090628
  3. MORPHINE [Concomitant]
  4. MEGACE [Concomitant]
  5. CELEXA [Concomitant]
  6. AMBIEN [Concomitant]

REACTIONS (1)
  - LOBAR PNEUMONIA [None]
